FAERS Safety Report 23873533 (Version 1)
Quarter: 2024Q2

REPORT INFORMATION
  Report Type: Spontaneous
  Country: US (occurrence: None)
  Receive Date: 20240517
  Receipt Date: 20240517
  Transmission Date: 20240716
  Serious: Yes (Other)
  Sender: FDA-Public Use
  Company Number: None

PATIENT
  Age: 45 Year
  Sex: Female
  Weight: 74.25 kg

DRUGS (1)
  1. DYSPORT [Suspect]
     Active Substance: ABOBOTULINUMTOXINA
     Dates: start: 20220216

REACTIONS (4)
  - Vision blurred [None]
  - Pain [None]
  - Inflammation [None]
  - Adverse drug reaction [None]

NARRATIVE: CASE EVENT DATE: 20220225
